FAERS Safety Report 17843721 (Version 2)
Quarter: 2020Q2

REPORT INFORMATION
  Report Type: Spontaneous
  Country: US (occurrence: US)
  Receive Date: 20200531
  Receipt Date: 20200624
  Transmission Date: 20200714
  Serious: Yes (Death, Life-Threatening, Hospitalization, Other)
  Sender: FDA-Public Use
  Company Number: US-AUROBINDO-AUR-APL-2020-026306

PATIENT
  Age: 41 Year
  Sex: Female

DRUGS (1)
  1. ACETAMINOPHEN TABLET [Suspect]
     Active Substance: ACETAMINOPHEN
     Indication: PRODUCT USED FOR UNKNOWN INDICATION
     Dosage: 500 DOSAGE FORM,1 TOTAL (INGESTED APPROXIMATELY 500 TABLETS OF ACETAMINOPHEN)
     Route: 048

REACTIONS (6)
  - Toxicity to various agents [Fatal]
  - Intentional overdose [Fatal]
  - Hypoperfusion [Not Recovered/Not Resolved]
  - Drug level increased [Fatal]
  - Multiple organ dysfunction syndrome [Fatal]
  - Metabolic acidosis [Not Recovered/Not Resolved]
